FAERS Safety Report 4335302-0 (Version None)
Quarter: 2004Q2

REPORT INFORMATION
  Report Type: 
  Country: None (occurrence: None)
  Receive Date: 20040408
  Receipt Date: 20040408
  Transmission Date: 20050107
  Serious: No
  Sender: FDA-Public Use
  Company Number: None

PATIENT
  Age: 7 Year
  Sex: Male
  Weight: 61.2356 kg

DRUGS (1)
  1. CARBAMAZEPINE [Suspect]
     Indication: GRAND MAL CONVULSION
     Dosage: 200 MD DAILY   ORAL
     Route: 048
     Dates: start: 20030328, end: 20040407

REACTIONS (4)
  - BALANCE DISORDER [None]
  - DIZZINESS [None]
  - RASH [None]
  - SCRATCH [None]
